FAERS Safety Report 6998713-0 (Version None)
Quarter: 2010Q3

REPORT INFORMATION
  Report Type: 
  Country: None (occurrence: None)
  Receive Date: 20100920
  Receipt Date: 20100122
  Transmission Date: 20110219
  Serious: No
  Sender: FDA-Public Use
  Company Number: US-ASTRAZENECA-2010SE03076

PATIENT
  Sex: Female
  Weight: 68 kg

DRUGS (2)
  1. SEROQUEL XR [Suspect]
     Dosage: DAILY
     Route: 048
  2. VISTARIL [Concomitant]

REACTIONS (7)
  - ANKLE FRACTURE [None]
  - BALANCE DISORDER [None]
  - CONTUSION [None]
  - HEADACHE [None]
  - HYPOAESTHESIA ORAL [None]
  - TENDON INJURY [None]
  - WRONG TECHNIQUE IN DRUG USAGE PROCESS [None]
